FAERS Safety Report 9722413 (Version 2)
Quarter: 2013Q4

REPORT INFORMATION
  Report Type: Spontaneous
  Country: US (occurrence: US)
  Receive Date: 20131202
  Receipt Date: 20131202
  Transmission Date: 20140711
  Serious: Yes (Hospitalization, Other)
  Sender: FDA-Public Use
  Company Number: PHEH2013US024576

PATIENT
  Sex: Female
  Weight: 52.16 kg

DRUGS (3)
  1. AFINITOR [Suspect]
     Indication: NEUROENDOCRINE TUMOUR
     Dosage: 10 MG, DAILY
     Route: 048
  2. TYLENOL [Concomitant]
     Indication: PAIN
     Route: 048
  3. OMEPRAZOLE [Concomitant]
     Indication: PAIN
     Dosage: 40 MG, DAILY
     Route: 048

REACTIONS (9)
  - Grand mal convulsion [Recovered/Resolved]
  - Loss of consciousness [Recovered/Resolved]
  - Muscle rigidity [Recovered/Resolved]
  - Headache [Recovering/Resolving]
  - Swelling [Recovered/Resolved]
  - Posterior reversible encephalopathy syndrome [Unknown]
  - Somnolence [Unknown]
  - Amnesia [Unknown]
  - Confusional state [Unknown]
